FAERS Safety Report 9806146 (Version 1)
Quarter: 2014Q1

REPORT INFORMATION
  Report Type: Spontaneous
  Country: KR (occurrence: KR)
  Receive Date: 20140109
  Receipt Date: 20140109
  Transmission Date: 20141002
  Serious: Yes (Other)
  Sender: FDA-Public Use
  Company Number: KR-PFIZER INC-2014002984

PATIENT
  Sex: Female

DRUGS (1)
  1. LYRICA [Suspect]
     Indication: HEADACHE
     Dosage: 75 MG, 1X/DAY
     Route: 048

REACTIONS (6)
  - Off label use [Unknown]
  - Abdominal distension [Unknown]
  - Urine output decreased [Unknown]
  - Micturition frequency decreased [Unknown]
  - Dysuria [Recovering/Resolving]
  - Dizziness [Unknown]
